FAERS Safety Report 9589245 (Version 1)
Quarter: 2013Q4

REPORT INFORMATION
  Report Type: Spontaneous
  Country: US (occurrence: US)
  Receive Date: 20131003
  Receipt Date: 20131003
  Transmission Date: 20140711
  Serious: No
  Sender: FDA-Public Use
  Company Number: US-AMGEN-USASP2012068905

PATIENT
  Age: 46 Year
  Sex: Female

DRUGS (1)
  1. ENBREL [Suspect]
     Indication: PRODUCT USED FOR UNKNOWN INDICATION
     Dosage: 50 MG, ONE TIME DOSE AT THE TIME
     Dates: start: 201204, end: 201204

REACTIONS (6)
  - Joint swelling [Not Recovered/Not Resolved]
  - Inflammatory marker increased [Not Recovered/Not Resolved]
  - Joint destruction [Not Recovered/Not Resolved]
  - Cartilage injury [Not Recovered/Not Resolved]
  - Injection site coldness [Recovered/Resolved]
  - Injection site pain [Recovered/Resolved]
